FAERS Safety Report 11150837 (Version 1)
Quarter: 2015Q2

REPORT INFORMATION
  Report Type: Spontaneous
  Country: US (occurrence: US)
  Receive Date: 20150601
  Receipt Date: 20150601
  Transmission Date: 20150821
  Serious: No
  Sender: FDA-Public Use
  Company Number: US-BRISTOL-MYERS SQUIBB COMPANY-BMS-2015-034154

PATIENT
  Age: 52 Year
  Sex: Male

DRUGS (1)
  1. ELIQUIS [Suspect]
     Active Substance: APIXABAN
     Indication: THROMBOSIS PROPHYLAXIS
     Dosage: 5 MG BID USED TO TAKE 20 MG PER DAY
     Route: 048
     Dates: start: 201505

REACTIONS (4)
  - Frequent bowel movements [Unknown]
  - Faeces discoloured [Unknown]
  - Overdose [Unknown]
  - Headache [Unknown]

NARRATIVE: CASE EVENT DATE: 20150520
